FAERS Safety Report 6659895-3 (Version None)
Quarter: 2010Q1

REPORT INFORMATION
  Report Type: 
  Country: None (occurrence: None)
  Receive Date: 20100330
  Receipt Date: 20100330
  Transmission Date: 20100710
  Serious: Yes (Life-Threatening, Hospitalization)
  Sender: FDA-Public Use
  Company Number: None

PATIENT
  Age: 70 Year
  Sex: Female
  Weight: 110 kg

DRUGS (1)
  1. TENECTEPLASE INJECTION 76.5MG [Suspect]
     Indication: ISCHAEMIC STROKE
     Dosage: 76.5MG ONCE IV BOLUS
     Route: 040
     Dates: start: 20090529, end: 20090529

REACTIONS (1)
  - HAEMORRHAGIC TRANSFORMATION STROKE [None]
